FAERS Safety Report 6894262-9 (Version None)
Quarter: 2010Q3

REPORT INFORMATION
  Report Type: 
  Country: None (occurrence: None)
  Receive Date: 20100708
  Receipt Date: 20091111
  Transmission Date: 20110219
  Serious: Yes (Other)
  Sender: FDA-Public Use
  Company Number: 2009298088

PATIENT
  Age: 56 Year
  Sex: Male
  Weight: 88.4 kg

DRUGS (10)
  1. CHANTIX [Suspect]
     Dates: start: 20091101
  2. LISINOPRIL [Concomitant]
  3. PLAVIX [Concomitant]
  4. ASPIRIN [Concomitant]
  5. LIPITOR [Concomitant]
  6. FISH OIL (FISH OIL) [Concomitant]
  7. AVELOX [Concomitant]
  8. CLONAZEPAM [Concomitant]
  9. CENTRUM SILVER (VITAMIN B NOS,ASCORBIC ACID, MINERALS NOS, TOCOPHERYL [Concomitant]
  10. REQUIP [Concomitant]

REACTIONS (3)
  - LIP SWELLING [None]
  - OEDEMA MOUTH [None]
  - SWELLING FACE [None]
